FAERS Safety Report 25852696 (Version 1)
Quarter: 2025Q3

REPORT INFORMATION
  Report Type: Spontaneous
  Country: US (occurrence: US)
  Receive Date: 20250926
  Receipt Date: 20250926
  Transmission Date: 20251021
  Serious: No
  Sender: TRIS PHARMA, INC.
  Company Number: US-TRIS PHARMA, INC.-25US012099

PATIENT

DRUGS (2)
  1. ONYDA XR [Suspect]
     Active Substance: CLONIDINE HYDROCHLORIDE
     Indication: Attention deficit hyperactivity disorder
     Dosage: 3 MILLILITRE, QD (AT NIGHT)
     Route: 048
     Dates: start: 20250820, end: 20250826
  2. ONYDA XR [Suspect]
     Active Substance: CLONIDINE HYDROCHLORIDE
     Dosage: 2 MILLILITRE, QD (AT NIGHT)
     Route: 048
     Dates: start: 20250731, end: 2025

REACTIONS (3)
  - Hypertonic bladder [Recovered/Resolved]
  - Off label use [Unknown]
  - Emotional disorder [Recovered/Resolved]

NARRATIVE: CASE EVENT DATE: 20250731
